FAERS Safety Report 6197228-X (Version None)
Quarter: 2009Q2

REPORT INFORMATION
  Report Type: 
  Country: None (occurrence: None)
  Receive Date: 20090521
  Receipt Date: 20071228
  Transmission Date: 20091009
  Serious: Yes (Other)
  Sender: FDA-Public Use
  Company Number: US-ASTRAZENECA-2007UW19269

PATIENT
  Age: 20567 Day
  Sex: Male
  Weight: 104.3 kg

DRUGS (24)
  1. SEROQUEL [Suspect]
     Indication: SLEEP DISORDER
     Dosage: 200 MG
     Route: 048
     Dates: start: 20041201
  2. SEROQUEL [Suspect]
     Indication: ANXIETY
     Dosage: 200 MG
     Route: 048
     Dates: start: 20041201
  3. SEROQUEL [Suspect]
     Indication: HALLUCINATION
     Dosage: 200 MG
     Route: 048
     Dates: start: 20041201
  4. SEROQUEL [Suspect]
     Indication: NIGHTMARE
     Dosage: 200 MG
     Route: 048
     Dates: start: 20041201
  5. SEROQUEL [Suspect]
     Indication: THINKING ABNORMAL
     Dosage: 200 MG
     Route: 048
     Dates: start: 20041201
  6. SEROQUEL [Suspect]
     Dosage: 50 MG AT NIGHT, AS REQUIRED
     Route: 048
     Dates: start: 20050616, end: 20060329
  7. SEROQUEL [Suspect]
     Dosage: 50 MG AT NIGHT, AS REQUIRED
     Route: 048
     Dates: start: 20050616, end: 20060329
  8. SEROQUEL [Suspect]
     Dosage: 50 MG AT NIGHT, AS REQUIRED
     Route: 048
     Dates: start: 20050616, end: 20060329
  9. SEROQUEL [Suspect]
     Dosage: 50 MG AT NIGHT, AS REQUIRED
     Route: 048
     Dates: start: 20050616, end: 20060329
  10. SEROQUEL [Suspect]
     Dosage: 50 MG AT NIGHT, AS REQUIRED
     Route: 048
     Dates: start: 20050616, end: 20060329
  11. VENLAFAXINE HCL [Concomitant]
     Dosage: 37.5-75MG
     Route: 048
  12. TRAZODONE HCL [Concomitant]
     Indication: SLEEP DISORDER
     Dosage: 50-100MG
     Route: 048
  13. TRAZODONE HCL [Concomitant]
     Indication: ANXIETY
     Dosage: 50-100MG
     Route: 048
  14. TRAZODONE HCL [Concomitant]
     Indication: DEPRESSION
     Dosage: 50-100MG
     Route: 048
  15. SERTRALINE HCL [Concomitant]
     Dosage: 25-200MG
     Route: 048
  16. CLONAZEPAM [Concomitant]
     Indication: ANXIETY
     Dosage: 0.5-1MG
     Route: 048
  17. BUPROPION HCL [Concomitant]
     Indication: DEPRESSION
     Route: 048
  18. BUPROPION HCL [Concomitant]
     Indication: TOBACCO USER
     Route: 048
  19. REMERON [Concomitant]
     Indication: SLEEP DISORDER
     Route: 048
  20. REMERON [Concomitant]
     Indication: ANXIETY
     Route: 048
  21. SIMVASTATIN [Concomitant]
     Indication: BLOOD CHOLESTEROL
     Dosage: 10-20MG
     Route: 048
  22. CITALOPRAM HYDROBROMIDE [Concomitant]
     Indication: ANXIETY
     Dosage: 10-20MG
     Route: 048
  23. CITALOPRAM HYDROBROMIDE [Concomitant]
     Indication: DEPRESSION
     Dosage: 10-20MG
     Route: 048
  24. LANSOPRAZOLE [Concomitant]
     Route: 048

REACTIONS (11)
  - ATAXIA [None]
  - BLOOD CHOLESTEROL INCREASED [None]
  - BREATHING-RELATED SLEEP DISORDER [None]
  - BURNING SENSATION [None]
  - GLYCOSYLATED HAEMOGLOBIN INCREASED [None]
  - HIGH DENSITY LIPOPROTEIN DECREASED [None]
  - LOW DENSITY LIPOPROTEIN INCREASED [None]
  - NEUROPATHY PERIPHERAL [None]
  - OXYGEN SATURATION DECREASED [None]
  - PRESBYOPIA [None]
  - TYPE 2 DIABETES MELLITUS [None]
